FAERS Safety Report 20222295 (Version 1)
Quarter: 2021Q4

REPORT INFORMATION
  Report Type: Spontaneous
  Country: US (occurrence: None)
  Receive Date: 20211223
  Receipt Date: 20211223
  Transmission Date: 20220303
  Serious: Yes (Hospitalization)
  Sender: FDA-Public Use
  Company Number: None

PATIENT
  Sex: Male
  Weight: 59.2 kg

DRUGS (1)
  1. DULOXETINE HYDROCHLORIDE [Suspect]
     Active Substance: DULOXETINE HYDROCHLORIDE
     Dosage: OTHER QUANTITY : 28 CAPSULE;?
     Dates: end: 20211202

REACTIONS (6)
  - Diarrhoea [None]
  - Gastrointestinal toxicity [None]
  - Intra-abdominal fluid collection [None]
  - Enteritis [None]
  - Gastrointestinal inflammation [None]
  - Neutropenia [None]

NARRATIVE: CASE EVENT DATE: 20211127
